FAERS Safety Report 8669520 (Version 2)
Quarter: 2012Q4

REPORT INFORMATION
  Report Type: 
  Country: US (occurrence: US)
  Receive Date: 20120718
  Receipt Date: 20120903
  Transmission Date: 20130627
  Serious: No
  Sender: FDA-Public Use
  Company Number: US-PFIZER INC-2012169691

PATIENT
  Age: 75 Year
  Sex: Male
  Weight: 77.1 kg

DRUGS (2)
  1. SOMAVERT [Suspect]
     Indication: PITUITARY TUMOUR BENIGN
     Dosage: UNK
     Route: 058
     Dates: end: 2012
  2. DIOVAN [Concomitant]
     Indication: HYPERTENSION
     Dosage: UNK

REACTIONS (1)
  - Pain in extremity [Recovered/Resolved]
